FAERS Safety Report 10413966 (Version 1)
Quarter: 2014Q3

REPORT INFORMATION
  Report Type: Spontaneous
  Country: US (occurrence: US)
  Receive Date: 20140827
  Receipt Date: 20140827
  Transmission Date: 20150326
  Serious: No
  Sender: FDA-Public Use
  Company Number: US-GALDERMA-US14002130

PATIENT

DRUGS (1)
  1. PLIAGLIS [Suspect]
     Active Substance: LIDOCAINE\TETRACAINE
     Indication: LOCAL ANAESTHESIA
     Route: 061

REACTIONS (1)
  - Drug ineffective [Unknown]
